FAERS Safety Report 9495662 (Version 1)
Quarter: 2013Q3

REPORT INFORMATION
  Report Type: Spontaneous
  Country: US (occurrence: US)
  Receive Date: 20130903
  Receipt Date: 20130903
  Transmission Date: 20140515
  Serious: Yes (Hospitalization)
  Sender: FDA-Public Use
  Company Number: US-BRISTOL-MYERS SQUIBB COMPANY-19209147

PATIENT
  Sex: 0

DRUGS (3)
  1. REYATAZ [Suspect]
  2. TRUVADA [Suspect]
  3. RITONAVIR [Suspect]

REACTIONS (1)
  - Gastric cancer [Unknown]
